FAERS Safety Report 6735412-4 (Version None)
Quarter: 2010Q2

REPORT INFORMATION
  Report Type: 
  Country: None (occurrence: None)
  Receive Date: 20100521
  Receipt Date: 20100510
  Transmission Date: 20101027
  Serious: Yes (Other)
  Sender: FDA-Public Use
  Company Number: PHHY2009FR52179

PATIENT
  Age: 60 Year
  Sex: Female

DRUGS (8)
  1. ACLASTA [Suspect]
     Indication: OSTEOPOROSIS
     Dosage: UNK
     Dates: start: 20091101
  2. METHOTREXATE [Concomitant]
     Indication: CUTANEOUS LUPUS ERYTHEMATOSUS
     Dosage: 15 MG, WEEKLY
     Dates: start: 20020101
  3. METHOTREXATE [Concomitant]
     Indication: RHEUMATOID ARTHRITIS
  4. CORTANCYL [Concomitant]
     Indication: CUTANEOUS LUPUS ERYTHEMATOSUS
     Dosage: 2 MG, QD
     Dates: start: 20020101
  5. CORTANCYL [Concomitant]
     Indication: RHEUMATOID ARTHRITIS
  6. ARTOTEC [Concomitant]
     Dosage: 75 MG, QD
  7. DAFALGAN [Concomitant]
  8. CHLOROQUINE PHOSPHATE [Concomitant]
     Indication: RHEUMATOID ARTHRITIS
     Dosage: 2 DF, DAILY
     Dates: start: 20050101

REACTIONS (2)
  - CONCOMITANT DISEASE AGGRAVATED [None]
  - CUTANEOUS LUPUS ERYTHEMATOSUS [None]
